FAERS Safety Report 12974178 (Version 1)
Quarter: 2016Q4

REPORT INFORMATION
  Report Type: Spontaneous
  Country: BR (occurrence: BR)
  Receive Date: 20161125
  Receipt Date: 20161125
  Transmission Date: 20170207
  Serious: Yes (Other)
  Sender: FDA-Public Use
  Company Number: BR-ROCHE-1857524

PATIENT
  Sex: Female

DRUGS (3)
  1. RIVOTRIL [Suspect]
     Active Substance: CLONAZEPAM
     Indication: NERVOUSNESS
  2. RIVOTRIL [Suspect]
     Active Substance: CLONAZEPAM
     Indication: AGITATION
  3. RIVOTRIL [Suspect]
     Active Substance: CLONAZEPAM
     Indication: ARRHYTHMIA
     Route: 065
     Dates: start: 1967

REACTIONS (12)
  - Fallopian tube cyst [Unknown]
  - Drug tolerance [Unknown]
  - Cold sweat [Unknown]
  - Drug ineffective [Unknown]
  - Somnolence [Unknown]
  - Agitation [Unknown]
  - Off label use [Unknown]
  - Nervousness [Unknown]
  - Muscle spasms [Unknown]
  - Deep vein thrombosis [Unknown]
  - Haemorrhoids [Recovered/Resolved]
  - Hyperhidrosis [Unknown]
